FAERS Safety Report 6454087-5 (Version None)
Quarter: 2009Q4

REPORT INFORMATION
  Report Type: 
  Country: None (occurrence: None)
  Receive Date: 20091124
  Receipt Date: 20091116
  Transmission Date: 20100525
  Serious: Yes (Hospitalization)
  Sender: FDA-Public Use
  Company Number: D0060137A

PATIENT
  Age: 65 Year
  Sex: Male
  Weight: 76 kg

DRUGS (6)
  1. CEFUHEXAL [Suspect]
     Indication: URINARY TRACT INFECTION
     Dosage: 250MG SINGLE DOSE
     Route: 048
     Dates: start: 20080508, end: 20080508
  2. CEFUROXIM AXETIL [Suspect]
     Indication: URINARY TRACT INFECTION
     Route: 065
     Dates: start: 20080403, end: 20080403
  3. ACETYLSALICYLIC ACID [Concomitant]
     Dosage: 100MG PER DAY
     Route: 048
     Dates: start: 19950101
  4. ATENOLOL [Concomitant]
     Dosage: 12.5MG TWICE PER DAY
     Route: 048
     Dates: start: 19950101
  5. CIPRALEX [Concomitant]
     Indication: DEPRESSION
     Dosage: 10MG PER DAY
     Route: 048
     Dates: start: 20000101
  6. METHIONINE [Concomitant]
     Indication: URINARY TRACT INFECTION
     Dosage: 500MG THREE TIMES PER DAY
     Route: 048
     Dates: start: 20080401

REACTIONS (5)
  - DRUG HYPERSENSITIVITY [None]
  - FALL [None]
  - HYPERSENSITIVITY [None]
  - HYPOTENSION [None]
  - SYNCOPE [None]
